FAERS Safety Report 19038910 (Version 1)
Quarter: 2021Q1

REPORT INFORMATION
  Report Type: Spontaneous
  Country: DE (occurrence: DE)
  Receive Date: 20210322
  Receipt Date: 20210322
  Transmission Date: 20210420
  Serious: Yes (Hospitalization)
  Sender: FDA-Public Use
  Company Number: DE-TEVA-2021-DE-1892061

PATIENT
  Age: 14 Year
  Sex: Female
  Weight: 56 kg

DRUGS (5)
  1. PROPRANOLOL 40MG TAB HER [Suspect]
     Active Substance: PROPRANOLOL HYDROCHLORIDE
     Indication: SUICIDAL IDEATION
     Dosage: 10 DOSAGE FORMS DAILY;
     Route: 048
     Dates: start: 20191120, end: 20191120
  2. MICROGYNON [Suspect]
     Active Substance: ETHINYL ESTRADIOL\LEVONORGESTREL ACETATE
     Indication: SUICIDAL IDEATION
     Dosage: 21 DOSAGE FORMS DAILY;
     Route: 048
     Dates: start: 20191120, end: 20191120
  3. ASPIRIN 500MG [Suspect]
     Active Substance: ASPIRIN
     Indication: SUICIDAL IDEATION
     Dosage: 10 DOSAGE FORMS DAILY;
     Route: 048
     Dates: start: 20191120, end: 20191120
  4. AGOMELATIN 25MG [Suspect]
     Active Substance: AGOMELATINE
     Indication: SUICIDAL IDEATION
     Dosage: 14 DOSAGE FORMS DAILY;
     Route: 048
     Dates: start: 20191120, end: 20191120
  5. L?THYROXIN 100UG [Suspect]
     Active Substance: LEVOTHYROXINE
     Indication: SUICIDAL IDEATION
     Dosage: 24 DOSAGE FORMS DAILY;
     Route: 048
     Dates: start: 20191120, end: 20191120

REACTIONS (5)
  - Dizziness [Unknown]
  - Intentional overdose [Unknown]
  - Hallucination [Unknown]
  - Toxicity to various agents [Unknown]
  - Nausea [Unknown]

NARRATIVE: CASE EVENT DATE: 20191120
